FAERS Safety Report 5991493-7 (Version None)
Quarter: 2008Q4

REPORT INFORMATION
  Report Type: 
  Country: None (occurrence: None)
  Receive Date: 20081211
  Receipt Date: 20081208
  Transmission Date: 20090506
  Serious: Yes (Other)
  Sender: FDA-Public Use
  Company Number: JP-ASTRAZENECA-2008AP08803

PATIENT
  Age: 60 Year
  Sex: Male
  Weight: 73 kg

DRUGS (3)
  1. IRESSA [Suspect]
     Indication: LUNG NEOPLASM MALIGNANT
     Route: 048
     Dates: start: 20080910, end: 20081007
  2. TENORMIN [Concomitant]
     Route: 048
  3. NORVASC [Concomitant]
     Dosage: 5 MG X 1 AND 2.5 MG X 1/DAY
     Route: 048

REACTIONS (3)
  - DIARRHOEA [None]
  - ERYTHEMA [None]
  - HEPATIC FUNCTION ABNORMAL [None]
